FAERS Safety Report 15604365 (Version 1)
Quarter: 2018Q4

REPORT INFORMATION
  Report Type: Spontaneous
  Country: US (occurrence: US)
  Receive Date: 20181110
  Receipt Date: 20181110
  Transmission Date: 20190205
  Serious: No
  Sender: FDA-Public Use
  Company Number: US-IPSEN BIOPHARMACEUTICALS, INC.-2018-17013

PATIENT
  Sex: Male

DRUGS (7)
  1. LOSARTAN POTASSIUM. [Concomitant]
     Active Substance: LOSARTAN POTASSIUM
     Route: 048
  2. CREON [Concomitant]
     Active Substance: PANCRELIPASE AMYLASE\PANCRELIPASE LIPASE\PANCRELIPASE PROTEASE
  3. XERMELO [Suspect]
     Active Substance: TELOTRISTAT ETHYL
     Indication: OFF LABEL USE
  4. SUTENT [Concomitant]
     Active Substance: SUNITINIB MALATE
     Route: 048
     Dates: start: 2017
  5. AMLODIPINE [Concomitant]
     Active Substance: AMLODIPINE BESYLATE
     Route: 048
  6. XERMELO [Suspect]
     Active Substance: TELOTRISTAT ETHYL
     Indication: DIARRHOEA
     Route: 048
  7. LANREOTIDE [Concomitant]
     Active Substance: LANREOTIDE
     Route: 030
     Dates: start: 201706

REACTIONS (2)
  - Abdominal pain upper [Unknown]
  - Off label use [Unknown]
